FAERS Safety Report 5048082-0 (Version None)
Quarter: 2006Q2

REPORT INFORMATION
  Report Type: 
  Country: None (occurrence: None)
  Receive Date: 20060601
  Receipt Date: 20060307
  Transmission Date: 20061013
  Serious: No
  Sender: FDA-Public Use
  Company Number: 2006PV009853

PATIENT
  Age: 38 Year
  Sex: Female
  Weight: 89.3586 kg

DRUGS (4)
  1. BYETTA [Suspect]
     Indication: DIABETES MELLITUS NON-INSULIN-DEPENDENT
     Dosage: 5 MCG; QD; SC
     Route: 058
     Dates: start: 20060306
  2. METFORMIN [Concomitant]
  3. SYNTHROID [Concomitant]
  4. SYTOMEL [Concomitant]

REACTIONS (5)
  - ABDOMINAL DISTENSION [None]
  - NAUSEA [None]
  - PERIPHERAL COLDNESS [None]
  - RHINORRHOEA [None]
  - SNEEZING [None]
